FAERS Safety Report 9452706 (Version 1)
Quarter: 2013Q3

REPORT INFORMATION
  Report Type: Spontaneous
  Country: US (occurrence: None)
  Receive Date: 20130808
  Receipt Date: 20130808
  Transmission Date: 20140515
  Serious: Yes (Hospitalization)
  Sender: FDA-Public Use
  Company Number: None

PATIENT
  Age: 56 Year
  Sex: Female
  Weight: 90.5 kg

DRUGS (1)
  1. ZOLEDRONIC ACID [Suspect]

REACTIONS (4)
  - Confusional state [None]
  - Pyrexia [None]
  - Gait disturbance [None]
  - Hyponatraemia [None]
